FAERS Safety Report 24985687 (Version 1)
Quarter: 2025Q1

REPORT INFORMATION
  Report Type: Spontaneous
  Country: US (occurrence: None)
  Receive Date: 20250217
  Receipt Date: 20250217
  Transmission Date: 20250408
  Serious: Yes (Disabling)
  Sender: FDA-CTU
  Company Number: None

PATIENT
  Age: 46 Year
  Sex: Female
  Weight: 63 kg

DRUGS (1)
  1. REPATHA [Suspect]
     Active Substance: EVOLOCUMAB
     Indication: Blood cholesterol increased
     Dates: start: 20250119, end: 20250203

REACTIONS (9)
  - Back pain [None]
  - Spinal pain [None]
  - Dysstasia [None]
  - Musculoskeletal disorder [None]
  - Insomnia [None]
  - Quality of life decreased [None]
  - Therapy cessation [None]
  - Drug intolerance [None]
  - Loss of personal independence in daily activities [None]

NARRATIVE: CASE EVENT DATE: 20250203
